FAERS Safety Report 21917815 (Version 2)
Quarter: 2023Q1

REPORT INFORMATION
  Report Type: Spontaneous
  Country: FR (occurrence: FR)
  Receive Date: 20230127
  Receipt Date: 20230303
  Transmission Date: 20230418
  Serious: Yes (Hospitalization)
  Sender: FDA-Public Use
  Company Number: None

PATIENT
  Age: 61 Year
  Sex: Male
  Weight: 74 kg

DRUGS (11)
  1. CETIRIZINE HYDROCHLORIDE [Suspect]
     Active Substance: CETIRIZINE HYDROCHLORIDE
     Indication: Pruritus
     Dosage: CETIRIZINE (DICHLORHYDRATE DE)
     Dates: start: 20221215, end: 20221223
  2. CEFTRIAXONE [Suspect]
     Active Substance: CEFTRIAXONE
     Indication: Infection
     Dates: start: 20221216, end: 20221222
  3. LINEZOLID [Suspect]
     Active Substance: LINEZOLID
     Indication: Infection
     Dates: start: 20221216, end: 20221223
  4. CLINDAMYCIN HYDROCHLORIDE [Suspect]
     Active Substance: CLINDAMYCIN HYDROCHLORIDE
     Indication: Infection
     Dates: start: 20221209, end: 20221217
  5. PEMBROLIZUMAB [Concomitant]
     Active Substance: PEMBROLIZUMAB
     Indication: Bronchial carcinoma
     Dates: start: 20221209, end: 20221209
  6. ALIMTA [Concomitant]
     Active Substance: PEMETREXED DISODIUM
     Indication: Bronchial carcinoma
     Dates: start: 20221209, end: 20221209
  7. DOXYCYCLINE [Concomitant]
     Active Substance: DOXYCYCLINE
     Indication: Product used for unknown indication
     Dates: start: 20221123, end: 20221209
  8. PRAZEPAM [Concomitant]
     Active Substance: PRAZEPAM
     Indication: Product used for unknown indication
  9. POLYETHYLENE GLYCOLS [Concomitant]
     Active Substance: POLYETHYLENE GLYCOLS
     Indication: Product used for unknown indication
     Dosage: MACROGOL (STEARATE DE)
  10. IOBITRIDOL [Concomitant]
     Active Substance: IOBITRIDOL
     Indication: Computerised tomogram
     Dosage: (350 MG IODINE/ML)
     Dates: start: 20221208, end: 20221208
  11. OXYCODONE [Concomitant]
     Active Substance: OXYCODONE
     Indication: Product used for unknown indication

REACTIONS (1)
  - Hepatic cytolysis [Recovered/Resolved]

NARRATIVE: CASE EVENT DATE: 20221219
